FAERS Safety Report 6018260-2 (Version None)
Quarter: 2008Q4

REPORT INFORMATION
  Report Type: 
  Country: None (occurrence: None)
  Receive Date: 20081223
  Receipt Date: 20081215
  Transmission Date: 20090506
  Serious: Yes (Other)
  Sender: FDA-Public Use
  Company Number: PHEH2006US00793

PATIENT
  Sex: Female

DRUGS (4)
  1. AREDIA [Suspect]
     Indication: BREAST CANCER
  2. ZOMETA [Suspect]
     Indication: BREAST CANCER
  3. ADRIAMYCIN + 5-FU [Concomitant]
     Dosage: UNK
     Dates: start: 19930101
  4. DECADRON                                /CAN/ [Concomitant]
     Dosage: 20 MG, UNK
     Dates: start: 19930101

REACTIONS (8)
  - DEFORMITY [None]
  - EATING DISORDER [None]
  - EMOTIONAL DISTRESS [None]
  - INFECTION [None]
  - LIFE EXPECTANCY SHORTENED [None]
  - METASTATIC NEOPLASM [None]
  - OSTEONECROSIS [None]
  - PAIN [None]
